FAERS Safety Report 15781600 (Version 1)
Quarter: 2019Q1

REPORT INFORMATION
  Report Type: Spontaneous
  Country: US (occurrence: US)
  Receive Date: 20190102
  Receipt Date: 20190102
  Transmission Date: 20190417
  Serious: No
  Sender: FDA-Public Use
  Company Number: US-PFIZER INC-2016460937

PATIENT
  Age: 54 Year
  Sex: Female

DRUGS (3)
  1. PREMARIN [Suspect]
     Active Substance: ESTROGENS, CONJUGATED
     Dosage: 1 G, 2X/WEEK (Q SUN + THURS HS)
     Route: 067
  2. PREMARIN [Suspect]
     Active Substance: ESTROGENS, CONJUGATED
     Dosage: 1 G, 1X/DAY (QHS FOR 3 WEEKS)
     Route: 067
  3. PREMARIN [Suspect]
     Active Substance: ESTROGENS, CONJUGATED
     Dosage: 1 G, 2X/WEEK (Q SAT + WED HS)
     Route: 067

REACTIONS (3)
  - Product use issue [Unknown]
  - Nasopharyngitis [Unknown]
  - Influenza like illness [Unknown]
